FAERS Safety Report 6405796-5 (Version None)
Quarter: 2009Q4

REPORT INFORMATION
  Report Type: 
  Country: None (occurrence: None)
  Receive Date: 20091019
  Receipt Date: 20091013
  Transmission Date: 20100525
  Serious: Yes (Life-Threatening, Disabling, Other)
  Sender: FDA-Public Use
  Company Number: DK-BRISTOL-MYERS SQUIBB COMPANY-14641344

PATIENT
  Age: 23 Year
  Sex: Female
  Weight: 51 kg

DRUGS (5)
  1. ORENCIA [Suspect]
     Indication: CROHN'S DISEASE
     Dosage: POWDER SOLN FOR INJ DOSAGE TEXT: 250 MG
     Route: 042
     Dates: start: 20071026, end: 20080307
  2. AZATHIOPRINE [Suspect]
     Indication: CROHN'S DISEASE
     Dates: start: 20000919, end: 20090401
  3. REMICADE [Suspect]
     Indication: CROHN'S DISEASE
     Dosage: POWDER SOLN FOR INF
     Route: 042
     Dates: start: 20050406, end: 20060823
  4. HUMIRA [Suspect]
     Indication: CROHN'S DISEASE
     Dosage: SOLN FOR INJ
     Route: 058
     Dates: start: 20061006, end: 20070321
  5. PREDNISONE TAB [Concomitant]
     Dates: start: 20080404

REACTIONS (1)
  - COLON CANCER [None]
